FAERS Safety Report 10029801 (Version 3)
Quarter: 2014Q3

REPORT INFORMATION
  Report Type: Spontaneous
  Country: US (occurrence: None)
  Receive Date: 20140320
  Receipt Date: 20140924
  Transmission Date: 20150326
  Serious: Yes (Death)
  Sender: FDA-Public Use
  Company Number: 1713747-2014-99923

PATIENT
  Age: 56 Year
  Sex: Male
  Weight: 82.5 kg

DRUGS (19)
  1. AMITTRIPTYLINE [Concomitant]
  2. LYRICA [Concomitant]
     Active Substance: PREGABALIN
  3. RENVELA [Concomitant]
     Active Substance: SEVELAMER CARBONATE
  4. EPOGEN [Concomitant]
     Active Substance: ERYTHROPOIETIN
  5. FERROUS SULFATE [Concomitant]
     Active Substance: FERROUS SULFATE\FERROUS SULFATE, DRIED
  6. LASIX [Concomitant]
     Active Substance: FUROSEMIDE
  7. SENSIPAR [Concomitant]
     Active Substance: CINACALCET HYDROCHLORIDE
  8. LIBERTY CYCLER [Concomitant]
     Active Substance: DEVICE
  9. GENTAMICIN 0/1% CREAM [Concomitant]
  10. MULTI-VITAMIN HP/MINERALS [Concomitant]
  11. ZEMPLAR [Concomitant]
     Active Substance: PARICALCITOL
  12. DELFLEX [Suspect]
     Active Substance: CALCIUM CHLORIDE\DEXTROSE MONOHYDRATE\MAGNESIUM CHLORIDE\SODIUM CHLORIDE\SODIUM LACTATE
     Indication: RENAL FAILURE CHRONIC
     Dosage: PERITONEAL DIALYSIS
     Dates: start: 20140226
  13. HYDRALAZINE [Concomitant]
     Active Substance: HYDRALAZINE HYDROCHLORIDE
  14. LIBERTY CYCLER CASSETTE [Concomitant]
     Active Substance: DEVICE
  15. LISINOPRIL. [Concomitant]
     Active Substance: LISINOPRIL
  16. SIMVASTATIN. [Concomitant]
     Active Substance: SIMVASTATIN
  17. ASPIRIN. [Concomitant]
     Active Substance: ASPIRIN
  18. VENOFER [Concomitant]
     Active Substance: IRON SUCROSE
  19. INDOMETHACIN. [Concomitant]
     Active Substance: INDOMETHACIN

REACTIONS (5)
  - Abdominal pain [None]
  - Cardio-respiratory arrest [None]
  - Staphylococcal infection [None]
  - Peritonitis [None]
  - Peritoneal fluid analysis abnormal [None]

NARRATIVE: CASE EVENT DATE: 20140226
